FAERS Safety Report 7732837-5 (Version None)
Quarter: 2011Q3

REPORT INFORMATION
  Report Type: 
  Country: None (occurrence: None)
  Receive Date: 20110907
  Receipt Date: 20110825
  Transmission Date: 20111222
  Serious: Yes (Hospitalization, Other)
  Sender: FDA-Public Use
  Company Number: SE-RANBAXY-2011RR-47290

PATIENT
  Age: 50 Year
  Sex: Male

DRUGS (4)
  1. METRONIDAZOLE [Suspect]
     Dosage: 400 MG, TID
     Route: 048
  2. METRONIDAZOLE [Suspect]
     Indication: ABSCESS
     Dosage: 1 G/ DAY
     Route: 065
  3. CIPROFLOXACIN [Suspect]
     Indication: PRODUCT USED FOR UNKNOWN INDICATION
     Dosage: UNK
     Route: 065
  4. CEFOTAXIME [Concomitant]
     Indication: PRODUCT USED FOR UNKNOWN INDICATION
     Dosage: UNK
     Route: 042

REACTIONS (2)
  - ENCEPHALOPATHY [None]
  - DEAFNESS [None]
